FAERS Safety Report 22191666 (Version 2)
Quarter: 2023Q2

REPORT INFORMATION
  Report Type: Spontaneous
  Country: FR (occurrence: FR)
  Receive Date: 20230410
  Receipt Date: 20230427
  Transmission Date: 20230721
  Serious: Yes (Hospitalization)
  Sender: FDA-Public Use
  Company Number: None

PATIENT
  Age: 57 Year
  Sex: Female
  Weight: 90 kg

DRUGS (5)
  1. ACETAMINOPHEN [Suspect]
     Active Substance: ACETAMINOPHEN
     Indication: Poisoning deliberate
     Dosage: 16 G, QD
     Route: 048
     Dates: start: 20211010, end: 20211010
  2. AMITRIPTYLINE HYDROCHLORIDE [Suspect]
     Active Substance: AMITRIPTYLINE HYDROCHLORIDE
     Indication: Poisoning deliberate
     Dosage: 800 MG
     Route: 048
     Dates: start: 20211010, end: 20211010
  3. CODEINE [Suspect]
     Active Substance: CODEINE
     Indication: Poisoning deliberate
     Dosage: 960 MG
     Route: 048
     Dates: start: 20211010, end: 20211010
  4. TRAMADOL HYDROCHLORIDE [Suspect]
     Active Substance: TRAMADOL HYDROCHLORIDE
     Indication: Poisoning deliberate
     Dosage: 1500 MG
     Route: 048
     Dates: start: 20211010, end: 20211010
  5. LEVOTHYROXINE SODIUM [Concomitant]
     Active Substance: LEVOTHYROXINE SODIUM
     Indication: Poisoning deliberate
     Dosage: UNK
     Route: 065
     Dates: start: 20211010, end: 20211010

REACTIONS (4)
  - Rhabdomyolysis [Recovering/Resolving]
  - Respiratory depression [Recovered/Resolved]
  - Toxicity to various agents [Recovered/Resolved]
  - Vomiting [Recovered/Resolved]

NARRATIVE: CASE EVENT DATE: 20211010
